FAERS Safety Report 19889671 (Version 1)
Quarter: 2021Q3

REPORT INFORMATION
  Report Type: Spontaneous
  Country: CA (occurrence: CA)
  Receive Date: 20210927
  Receipt Date: 20210927
  Transmission Date: 20211014
  Serious: Yes (Other)
  Sender: FDA-Public Use
  Company Number: CA-TAKEDA-2021TUS057466

PATIENT
  Age: 48 Year
  Sex: Female
  Weight: 83 kg

DRUGS (9)
  1. C1 INHIBITOR (HUMAN) [Suspect]
     Active Substance: HUMAN C1-ESTERASE INHIBITOR
     Indication: HEREDITARY ANGIOEDEMA WITH C1 ESTERASE INHIBITOR DEFICIENCY
  2. C1 INHIBITOR (HUMAN) [Suspect]
     Active Substance: HUMAN C1-ESTERASE INHIBITOR
     Indication: PROPHYLAXIS
     Dosage: 5000 INTERNATIONAL UNIT, 2/WEEK
     Route: 058
  3. C1 INHIBITOR (HUMAN) [Suspect]
     Active Substance: HUMAN C1-ESTERASE INHIBITOR
     Indication: PROPHYLAXIS
     Dosage: 5000 INTERNATIONAL UNIT, 2/WEEK
     Route: 058
  4. C1 INHIBITOR (HUMAN) [Suspect]
     Active Substance: HUMAN C1-ESTERASE INHIBITOR
     Indication: PROPHYLAXIS
     Dosage: 5000 INTERNATIONAL UNIT, 2/WEEK
     Route: 058
  5. C1 INHIBITOR (HUMAN) [Suspect]
     Active Substance: HUMAN C1-ESTERASE INHIBITOR
     Indication: HEREDITARY ANGIOEDEMA WITH C1 ESTERASE INHIBITOR DEFICIENCY
  6. C1 INHIBITOR (HUMAN) [Suspect]
     Active Substance: HUMAN C1-ESTERASE INHIBITOR
     Indication: HEREDITARY ANGIOEDEMA WITH C1 ESTERASE INHIBITOR DEFICIENCY
  7. LITHIUM. [Concomitant]
     Active Substance: LITHIUM
  8. MIRABEGRON [Concomitant]
     Active Substance: MIRABEGRON
  9. ABILIFY [Concomitant]
     Active Substance: ARIPIPRAZOLE

REACTIONS (3)
  - Abdominal distension [Recovered/Resolved]
  - Underdose [Recovered/Resolved]
  - Hereditary angioedema [Recovered/Resolved]
